FAERS Safety Report 11093748 (Version 3)
Quarter: 2015Q3

REPORT INFORMATION
  Report Type: Spontaneous
  Country: AU (occurrence: AU)
  Receive Date: 20150506
  Receipt Date: 20150922
  Transmission Date: 20151125
  Serious: Yes (Other)
  Sender: FDA-Public Use
  Company Number: AU-PFIZER INC-2015138624

PATIENT
  Age: 69 Year
  Sex: Female

DRUGS (2)
  1. CHLORAMPHENICOL [Suspect]
     Active Substance: CHLORAMPHENICOL
     Indication: DRY EYE
     Dosage: UNK
  2. CHLORAMPHENICOL [Suspect]
     Active Substance: CHLORAMPHENICOL
     Indication: DRY EYE
     Dosage: DROPS

REACTIONS (2)
  - Intentional product misuse [Not Recovered/Not Resolved]
  - Blindness [Not Recovered/Not Resolved]
